FAERS Safety Report 9580283 (Version 1)
Quarter: 2013Q3

REPORT INFORMATION
  Report Type: Spontaneous
  Country: US (occurrence: None)
  Receive Date: 20130916
  Receipt Date: 20130916
  Transmission Date: 20140515
  Serious: Yes (Other)
  Sender: FDA-Public Use
  Company Number: JPI-P-032812

PATIENT
  Age: 66 Year
  Sex: Male
  Weight: 102.06 kg

DRUGS (7)
  1. XYREM (500 MILLIGRAM/MILLILITERS, SOLUTION) (SODIUM OXYBATE) [Suspect]
     Indication: CATAPLEXY
     Dosage: 4.5 GM (2.25 GM, 2 IN 1 D), ORAL
     Route: 048
     Dates: start: 20120709, end: 2012
  2. SERTRALINE HYDROCHLORIDE [Concomitant]
  3. GLYBURIDE; METFORMIN HYDROCHLORIDE [Concomitant]
  4. MODAFINIL [Concomitant]
  5. LEVOTHYROXINE SODIUM [Concomitant]
  6. MEDICATION FOR REFLUX [Concomitant]
  7. IBUPROFEN [Concomitant]

REACTIONS (2)
  - Blood pressure increased [None]
  - Condition aggravated [None]
